FAERS Safety Report 19508564 (Version 1)
Quarter: 2021Q3

REPORT INFORMATION
  Report Type: Spontaneous
  Country: CA (occurrence: CA)
  Receive Date: 20210708
  Receipt Date: 20210708
  Transmission Date: 20211014
  Serious: Yes (Hospitalization)
  Sender: FDA-Public Use
  Company Number: CA-MYLANLABS-2021M1040408

PATIENT
  Age: 73 Year
  Sex: Male

DRUGS (1)
  1. ASCORBIC ACID. [Suspect]
     Active Substance: ASCORBIC ACID
     Indication: SEPTIC SHOCK
     Dosage: 50 MILLIGRAM/KILOGRAM, Q6H, FOR 96 HOURS
     Route: 042

REACTIONS (1)
  - Hyperglycaemia [Recovering/Resolving]
